FAERS Safety Report 13024501 (Version 1)
Quarter: 2016Q4

REPORT INFORMATION
  Report Type: Report from Study
  Country: US (occurrence: US)
  Receive Date: 20161213
  Receipt Date: 20161213
  Transmission Date: 20170207
  Serious: Yes (Hospitalization)
  Sender: FDA-Public Use
  Company Number: US-ACTELION-A-US2016-146643

PATIENT
  Age: 13 Month
  Sex: Female

DRUGS (7)
  1. SILDENAFIL. [Concomitant]
     Active Substance: SILDENAFIL
  2. ALDACTONE [Concomitant]
     Active Substance: SPIRONOLACTONE
  3. PRILOSEC [Concomitant]
     Active Substance: OMEPRAZOLE MAGNESIUM
  4. FUROSEMIDE. [Concomitant]
     Active Substance: FUROSEMIDE
  5. FLURA-DROPS [Concomitant]
     Active Substance: SODIUM FLUORIDE
  6. TRACLEER [Suspect]
     Active Substance: BOSENTAN
     Indication: PULMONARY ARTERIAL HYPERTENSION
     Dosage: 15.62 MG, BID
     Route: 048
     Dates: start: 20160929
  7. SIMETHICONE (DIMETHICONE) [Concomitant]
     Active Substance: DIMETHICONE

REACTIONS (1)
  - Tracheostomy infection [Recovering/Resolving]

NARRATIVE: CASE EVENT DATE: 20161128
